FAERS Safety Report 11721776 (Version 1)
Quarter: 2015Q4

REPORT INFORMATION
  Report Type: Spontaneous
  Country: US (occurrence: US)
  Receive Date: 20151111
  Receipt Date: 20151111
  Transmission Date: 20160304
  Serious: No
  Sender: FDA-Public Use
  Company Number: US-JNJFOC-20151019694

PATIENT
  Age: 89 Year
  Sex: Female
  Weight: 72.58 kg

DRUGS (3)
  1. XARELTO [Suspect]
     Active Substance: RIVAROXABAN
     Indication: HEART VALVE INCOMPETENCE
     Route: 048
     Dates: start: 201502
  2. BENICAR [Concomitant]
     Active Substance: OLMESARTAN MEDOXOMIL
     Indication: BLOOD PRESSURE ABNORMAL
     Route: 065
     Dates: start: 2012
  3. CARBUTEROL [Concomitant]
     Indication: BLOOD PRESSURE ABNORMAL
     Route: 065

REACTIONS (3)
  - Hallucination [Not Recovered/Not Resolved]
  - Product use issue [Unknown]
  - Off label use [Unknown]

NARRATIVE: CASE EVENT DATE: 201502
